FAERS Safety Report 7130060-9 (Version None)
Quarter: 2010Q4

REPORT INFORMATION
  Report Type: 
  Country: None (occurrence: None)
  Receive Date: 20101201
  Receipt Date: 20101122
  Transmission Date: 20110411
  Serious: No
  Sender: FDA-Public Use
  Company Number: US-BIOGENIDEC-2010BI041473

PATIENT
  Age: 48 Year
  Sex: Female

DRUGS (2)
  1. TYSABRI [Suspect]
     Indication: MULTIPLE SCLEROSIS
     Route: 042
     Dates: start: 20090303, end: 20100917
  2. TYSABRI [Suspect]
     Route: 042
     Dates: start: 20100101

REACTIONS (4)
  - FATIGUE [None]
  - HEADACHE [None]
  - ILL-DEFINED DISORDER [None]
  - INFLUENZA [None]
